FAERS Safety Report 12761951 (Version 1)
Quarter: 2016Q3

REPORT INFORMATION
  Report Type: Spontaneous
  Country: US (occurrence: US)
  Receive Date: 20160915
  Receipt Date: 20160915
  Transmission Date: 20161109
  Serious: Yes (Hospitalization)
  Sender: FDA-Public Use
  Company Number: None

PATIENT
  Age: 87 Year
  Sex: Female

DRUGS (1)
  1. CAPECITABINE 500MG TEVA PHARMACEUTICALS USA INC [Suspect]
     Active Substance: CAPECITABINE
     Indication: NEOPLASM MALIGNANT
     Dosage: 1500MG ORALLY IN MORNING ORALLY
     Route: 048
     Dates: start: 20160611

REACTIONS (3)
  - Vomiting [None]
  - Blood potassium decreased [None]
  - Nausea [None]
